FAERS Safety Report 20961798 (Version 2)
Quarter: 2022Q3

REPORT INFORMATION
  Report Type: Spontaneous
  Country: US (occurrence: US)
  Receive Date: 20220615
  Receipt Date: 20220718
  Transmission Date: 20221026
  Serious: No
  Sender: FDA-Public Use
  Company Number: US-ALK-ABELLO A/S-2022AA001752

PATIENT

DRUGS (2)
  1. SALMON [Suspect]
     Active Substance: SALMON, UNSPECIFIED
     Indication: Diagnostic procedure
     Route: 003
  2. UNSPECIFIED INGREDIENT [Suspect]
     Active Substance: UNSPECIFIED INGREDIENT
     Indication: Diagnostic procedure
     Route: 003

REACTIONS (1)
  - False negative investigation result [Unknown]
